FAERS Safety Report 5911155-1 (Version None)
Quarter: 2008Q4

REPORT INFORMATION
  Report Type: 
  Country: None (occurrence: None)
  Receive Date: 20081007
  Receipt Date: 20080327
  Transmission Date: 20090506
  Serious: No
  Sender: FDA-Public Use
  Company Number: US-BRISTOL-MYERS SQUIBB COMPANY-14128938

PATIENT
  Age: 61 Year
  Sex: Female

DRUGS (4)
  1. AVAPRO [Suspect]
     Dates: start: 20080131
  2. HYDROCHLOROTHIAZIDE [Concomitant]
  3. POTASSIUM CHLORIDE [Concomitant]
  4. PROTONIX [Concomitant]

REACTIONS (1)
  - ALOPECIA [None]
